FAERS Safety Report 16756793 (Version 1)
Quarter: 2019Q3

REPORT INFORMATION
  Report Type: Spontaneous
  Country: US (occurrence: US)
  Receive Date: 20190829
  Receipt Date: 20190829
  Transmission Date: 20191005
  Serious: No
  Sender: FDA-Public Use
  Company Number: US-JNJFOC-20190834901

PATIENT
  Age: 51 Year
  Sex: Female
  Weight: 54.48 kg

DRUGS (2)
  1. TRI-SPRINTEC [Suspect]
     Active Substance: ETHINYL ESTRADIOL\NORGESTIMATE
     Indication: PRODUCT USED FOR UNKNOWN INDICATION
     Route: 065
     Dates: start: 20190826
  2. ORTHO CYCLEN [Suspect]
     Active Substance: ETHINYL ESTRADIOL\NORGESTIMATE
     Indication: HORMONE REPLACEMENT THERAPY
     Dosage: BLISTER PACKAGE?ORTHO CYCLEN/ORTHO TRI-CYCLEN
     Route: 048
     Dates: end: 20190820

REACTIONS (6)
  - Off label use [Unknown]
  - Headache [Unknown]
  - Hot flush [Unknown]
  - Acne [Unknown]
  - Night sweats [Unknown]
  - Product use in unapproved indication [Unknown]

NARRATIVE: CASE EVENT DATE: 20190827
